FAERS Safety Report 4470005-3 (Version None)
Quarter: 2004Q3

REPORT INFORMATION
  Report Type: 
  Country: None (occurrence: None)
  Receive Date: 20040917
  Receipt Date: 20040820
  Transmission Date: 20050211
  Serious: Yes (Other)
  Sender: FDA-Public Use
  Company Number: 2004058834

PATIENT
  Age: 65 Year
  Sex: Female
  Weight: 70 kg

DRUGS (10)
  1. VFEND [Suspect]
     Indication: CANDIDIASIS
     Dosage: 480 MG (240 MG, 2 IN 1
     Route: 042
     Dates: start: 20040701, end: 20040806
  2. VANCOMYCIN [Concomitant]
  3. FUROSEMIDE [Concomitant]
  4. SALBUTAMOL (SALBUTAMOL) [Concomitant]
  5. VICODIN [Concomitant]
  6. HYDROMORPHONE HYDROCHLORIDE [Concomitant]
  7. FENTANYL [Concomitant]
  8. LORAZEPAM [Concomitant]
  9. ALBUMIN (HUMAN) [Concomitant]
  10. DIGOXIN [Concomitant]

REACTIONS (7)
  - ACIDOSIS [None]
  - BLOOD CREATININE INCREASED [None]
  - BLOOD PH DECREASED [None]
  - BLOOD UREA INCREASED [None]
  - DEHYDRATION [None]
  - LABORATORY TEST ABNORMAL [None]
  - NEPHROPATHY TOXIC [None]
